FAERS Safety Report 18014809 (Version 2)
Quarter: 2020Q3

REPORT INFORMATION
  Report Type: Spontaneous
  Country: US (occurrence: US)
  Receive Date: 20200713
  Receipt Date: 20200915
  Transmission Date: 20201103
  Serious: Yes (Other)
  Sender: FDA-Public Use
  Company Number: US-BAYER-2020-139540

PATIENT
  Age: 49 Year
  Sex: Male

DRUGS (2)
  1. KOGENATE FS [Suspect]
     Active Substance: ANTIHEMOPHILIC FACTOR, HUMAN RECOMBINANT
     Dosage: 3585 UN
     Route: 042
  2. KOGENATE FS [Suspect]
     Active Substance: ANTIHEMOPHILIC FACTOR, HUMAN RECOMBINANT
     Dosage: 1 DF, ONCE (1 DOSE FOR THIS BLEED DUE TO HIS TOE BEING SWOLLEN)
     Route: 042
     Dates: start: 20200702, end: 20200702

REACTIONS (3)
  - Limb injury [None]
  - Peripheral swelling [None]
  - Haemorrhage [None]

NARRATIVE: CASE EVENT DATE: 20200702
